FAERS Safety Report 6213914-7 (Version None)
Quarter: 2009Q2

REPORT INFORMATION
  Report Type: 
  Country: None (occurrence: None)
  Receive Date: 20090602
  Receipt Date: 20090528
  Transmission Date: 20091009
  Serious: Yes (Death)
  Sender: FDA-Public Use
  Company Number: 2009SP011522

PATIENT
  Sex: Female

DRUGS (1)
  1. TEMODAR [Suspect]
     Indication: MALIGNANT MELANOMA

REACTIONS (2)
  - DISEASE PROGRESSION [None]
  - MALIGNANT MELANOMA [None]
